FAERS Safety Report 20125417 (Version 2)
Quarter: 2022Q1

REPORT INFORMATION
  Report Type: Spontaneous
  Country: US (occurrence: None)
  Receive Date: 20211129
  Receipt Date: 20220103
  Transmission Date: 20220423
  Serious: No
  Sender: FDA-Public Use
  Company Number: 2021A807221

PATIENT
  Age: 25254 Day
  Sex: Female
  Weight: 93 kg

DRUGS (1)
  1. BYDUREON BCISE [Suspect]
     Active Substance: EXENATIDE
     Indication: Glycosylated haemoglobin decreased
     Route: 058
     Dates: start: 20211105

REACTIONS (4)
  - Constipation [Unknown]
  - Wrong technique in device usage process [Unknown]
  - Incorrect product administration duration [Unknown]
  - Device leakage [Unknown]

NARRATIVE: CASE EVENT DATE: 20211105
